FAERS Safety Report 6179850-X (Version None)
Quarter: 2009Q2

REPORT INFORMATION
  Report Type: 
  Country: None (occurrence: None)
  Receive Date: 20090501
  Receipt Date: 20090424
  Transmission Date: 20091009
  Serious: Yes (Death, Other)
  Sender: FDA-Public Use
  Company Number: 2009US001281

PATIENT
  Age: 42 Year
  Sex: Male

DRUGS (2)
  1. PROGRAF [Suspect]
     Indication: LIVER TRANSPLANT
  2. CORTICOSTEROIDS [Concomitant]

REACTIONS (10)
  - ASCITES [None]
  - CANDIDIASIS [None]
  - CULTURE POSITIVE [None]
  - GRAFT DYSFUNCTION [None]
  - INFERIOR VENA CAVAL OCCLUSION [None]
  - MALNUTRITION [None]
  - PERITONEAL FIBROSIS [None]
  - PERITONITIS SCLEROSING [None]
  - SMALL INTESTINAL OBSTRUCTION [None]
  - STREPTOCOCCAL INFECTION [None]
